FAERS Safety Report 22176860 (Version 2)
Quarter: 2023Q2

REPORT INFORMATION
  Report Type: Spontaneous
  Country: AU (occurrence: AU)
  Receive Date: 20230405
  Receipt Date: 20230412
  Transmission Date: 20230721
  Serious: Yes (Other)
  Sender: FDA-Public Use
  Company Number: AU-MLMSERVICE-20230331-4201422-1

PATIENT
  Age: 45 Year
  Sex: Female

DRUGS (10)
  1. OXALIPLATIN [Suspect]
     Active Substance: OXALIPLATIN
     Indication: Metastases to pelvis
     Dosage: UNK
  2. OXALIPLATIN [Suspect]
     Active Substance: OXALIPLATIN
     Indication: Colon cancer metastatic
  3. OXALIPLATIN [Suspect]
     Active Substance: OXALIPLATIN
     Indication: Metastases to lymph nodes
  4. FLUOROURACIL [Suspect]
     Active Substance: FLUOROURACIL
     Indication: Metastases to lymph nodes
     Dosage: UNK
  5. FLUOROURACIL [Suspect]
     Active Substance: FLUOROURACIL
     Indication: Colon cancer metastatic
  6. FLUOROURACIL [Suspect]
     Active Substance: FLUOROURACIL
     Indication: Metastases to pelvis
  7. LEUCOVORIN [Suspect]
     Active Substance: LEUCOVORIN
     Indication: Metastases to pelvis
     Dosage: UNK
  8. LEUCOVORIN [Suspect]
     Active Substance: LEUCOVORIN
     Indication: Colon cancer metastatic
  9. LEUCOVORIN [Suspect]
     Active Substance: LEUCOVORIN
     Indication: Metastases to lymph nodes
  10. CLOZAPINE [Concomitant]
     Active Substance: CLOZAPINE
     Indication: Schizophrenia
     Dosage: 300 MG, QD (LONG TERM)

REACTIONS (3)
  - Constipation [Recovered/Resolved]
  - Abdominal discomfort [Unknown]
  - Nausea [Unknown]
